FAERS Safety Report 26179000 (Version 1)
Quarter: 2025Q4

REPORT INFORMATION
  Report Type: Spontaneous
  Country: GB (occurrence: GB)
  Receive Date: 20251219
  Receipt Date: 20251219
  Transmission Date: 20260118
  Serious: Yes (Death, Life-Threatening, Other)
  Sender: RANBAXY
  Company Number: GB-MHRA-MED-202508011257223060-GCTYB

PATIENT
  Age: 43 Year
  Sex: Male

DRUGS (3)
  1. CITALOPRAM [Suspect]
     Active Substance: CITALOPRAM
     Indication: Anxiety
     Dosage: 10MG OD FOR FIRST 7 DAYS THEN 20MG OD
     Route: 065
     Dates: end: 20231115
  2. CITALOPRAM [Suspect]
     Active Substance: CITALOPRAM
     Dosage: 10MG OD FOR FIRST 7 DAYS THEN 20MG OD
     Route: 065
     Dates: start: 20231031
  3. ZOPICLONE [Concomitant]
     Active Substance: ZOPICLONE
     Indication: Insomnia
     Dosage: UNK
     Route: 065
     Dates: start: 20231107

REACTIONS (9)
  - Completed suicide [Fatal]
  - Suicidal ideation [Unknown]
  - Depressed mood [Unknown]
  - Restlessness [Not Recovered/Not Resolved]
  - Hyperhidrosis [Unknown]
  - Dyspepsia [Unknown]
  - Insomnia [Unknown]
  - Anxiety [Unknown]
  - Diarrhoea [Unknown]

NARRATIVE: CASE EVENT DATE: 20231117
